FAERS Safety Report 17121564 (Version 4)
Quarter: 2020Q1

REPORT INFORMATION
  Report Type: Report from Study
  Country: GB (occurrence: GB)
  Receive Date: 20191206
  Receipt Date: 20200228
  Transmission Date: 20200409
  Serious: Yes (Other)
  Sender: FDA-Public Use
  Company Number: NVSC2019GB055147

PATIENT
  Sex: Female

DRUGS (2)
  1. HYRIMOZ [Suspect]
     Active Substance: ADALIMUMAB-ADAZ
     Indication: PSORIASIS
     Dosage: 40/0.8 MG, Q2W
     Route: 058
  2. HYRIMOZ [Suspect]
     Active Substance: ADALIMUMAB-ADAZ
     Indication: CROHN^S DISEASE
     Dosage: 160MG WEEK 0, 80MG WEEK 2, 40MG WEEK 4 FORTNIGHTLY THEREAFTER
     Route: 065
     Dates: start: 20191128

REACTIONS (9)
  - Nasal congestion [Not Recovered/Not Resolved]
  - Feeling hot [Unknown]
  - Dizziness [Unknown]
  - Oropharyngeal pain [Not Recovered/Not Resolved]
  - Headache [Not Recovered/Not Resolved]
  - Anxiety [Unknown]
  - Syncope [Unknown]
  - Malaise [Unknown]
  - Fatigue [Not Recovered/Not Resolved]
